FAERS Safety Report 24652244 (Version 1)
Quarter: 2024Q4

REPORT INFORMATION
  Report Type: Spontaneous
  Country: US (occurrence: None)
  Receive Date: 20241121
  Receipt Date: 20241121
  Transmission Date: 20250115
  Serious: Yes (Death, Hospitalization)
  Sender: Public
  Company Number: None

PATIENT
  Age: 48 Year
  Sex: Male

DRUGS (1)
  1. LENALIDOMIDE [Suspect]
     Active Substance: LENALIDOMIDE
     Indication: Plasma cell myeloma
     Dosage: FREQUENCY : DAILY;?
     Route: 048
     Dates: start: 20200331, end: 20240929

REACTIONS (5)
  - Spinal cord compression [None]
  - Renal failure [None]
  - Gastrointestinal haemorrhage [None]
  - Shock [None]
  - Bacteraemia [None]

NARRATIVE: CASE EVENT DATE: 20241115
